FAERS Safety Report 4617980-1 (Version None)
Quarter: 2005Q1

REPORT INFORMATION
  Report Type: 
  Country: None (occurrence: None)
  Receive Date: 20050324
  Receipt Date: 20040811
  Transmission Date: 20050727
  Serious: Yes (Hospitalization)
  Sender: FDA-Public Use
  Company Number: FR-SANOFI-SYNTHELABO-F01200402436

PATIENT
  Sex: Male

DRUGS (6)
  1. OXALIPLATIN [Suspect]
     Indication: PANCREATIC CARCINOMA
     Route: 042
     Dates: start: 20040703, end: 20040703
  2. FLUOROURACIL [Suspect]
     Dosage: 250 MG/M2/DAY, 7 DAYS A WEEK FOR 5 WEEK
     Route: 042
     Dates: end: 20040703
  3. PREVISCAN [Concomitant]
     Dosage: UNK
     Route: 065
  4. CORDARONE [Concomitant]
  5. CORGARD [Concomitant]
  6. CREON [Concomitant]

REACTIONS (9)
  - DEHYDRATION [None]
  - DIARRHOEA [None]
  - DISORIENTATION [None]
  - GENERAL PHYSICAL HEALTH DETERIORATION [None]
  - HYPOALBUMINAEMIA [None]
  - HYPONATRAEMIA [None]
  - INTERNATIONAL NORMALISED RATIO INCREASED [None]
  - MALNUTRITION [None]
  - OVERDOSE [None]
